FAERS Safety Report 25661768 (Version 1)
Quarter: 2025Q3

REPORT INFORMATION
  Report Type: Report from Study
  Country: CA (occurrence: CA)
  Receive Date: 20250809
  Receipt Date: 20250809
  Transmission Date: 20251021
  Serious: Yes (Other)
  Sender: TEVA
  Company Number: CA-TEVA-VS-3361382

PATIENT
  Age: 70 Year
  Sex: Male
  Weight: 76 kg

DRUGS (7)
  1. AMLODIPINE [Suspect]
     Active Substance: AMLODIPINE BESYLATE
     Indication: Blood pressure management
     Route: 065
  2. RIVOTRIL [Concomitant]
     Active Substance: CLONAZEPAM
     Indication: Stress
     Route: 065
  3. PERINDOPRIL [Concomitant]
     Active Substance: PERINDOPRIL
     Indication: Blood pressure management
     Route: 065
  4. SILIQ [Suspect]
     Active Substance: BRODALUMAB
     Indication: Psoriasis
     Dosage: SILIQ 2 SINGLE USE PREFILLED SYRINGES
     Route: 058
  5. SILIQ [Suspect]
     Active Substance: BRODALUMAB
     Indication: Psoriasis
     Dosage: DOSE FORM: SOLUTION SUBCUTANEOUS
     Route: 058
  6. SILIQ [Suspect]
     Active Substance: BRODALUMAB
     Indication: Psoriasis
     Route: 058
  7. ALLOPURINOL [Concomitant]
     Active Substance: ALLOPURINOL
     Indication: Renal lithiasis prophylaxis
     Route: 065

REACTIONS (4)
  - Blood pressure increased [Not Recovered/Not Resolved]
  - Influenza [Not Recovered/Not Resolved]
  - Psoriasis [Not Recovered/Not Resolved]
  - Disease recurrence [Not Recovered/Not Resolved]
